FAERS Safety Report 8375163-6 (Version None)
Quarter: 2012Q2

REPORT INFORMATION
  Report Type: 
  Country: None (occurrence: None)
  Receive Date: 20120521
  Receipt Date: 20120508
  Transmission Date: 20120825
  Serious: Yes (Congenital Anomaly)
  Sender: FDA-Public Use
  Company Number: DE-MYLANLABS-2012S1009431

PATIENT
  Age: 0 Year
  Sex: Female

DRUGS (4)
  1. DEXAMETHASONE [Concomitant]
     Route: 064
  2. ASTONIN-H [Concomitant]
     Dosage: 0.1 [MG/D (2X0,05) ]
     Route: 064
     Dates: start: 20100224, end: 20100712
  3. HYDROCORTISONE [Concomitant]
     Dosage: 35 [MG/D (15-10-10) ]
     Route: 064
     Dates: start: 20100224, end: 20100712
  4. LAMOTRIGINE [Suspect]
     Indication: EPILEPSY
     Dosage: 325 [MG/D (125-0-200) ]/ EPILEPSY SINCE 1995
     Route: 064
     Dates: start: 20100224, end: 20100712

REACTIONS (7)
  - CEREBRAL VENTRICLE DILATATION [None]
  - MATERNAL EXPOSURE DURING PREGNANCY [None]
  - BRACHYCEPHALY [None]
  - OESOPHAGEAL ATRESIA [None]
  - CEREBELLAR HYPOPLASIA [None]
  - TALIPES [None]
  - RETROGNATHIA [None]
